FAERS Safety Report 20108352 (Version 1)
Quarter: 2021Q4

REPORT INFORMATION
  Report Type: Spontaneous
  Country: US (occurrence: US)
  Receive Date: 20211124
  Receipt Date: 20211124
  Transmission Date: 20220303
  Serious: Yes (Life-Threatening, Hospitalization)
  Sender: FDA-Public Use
  Company Number: US-MYLANLABS-2021M1086605

PATIENT
  Age: 11 Day
  Sex: Male

DRUGS (2)
  1. DIGOXIN [Suspect]
     Active Substance: DIGOXIN
     Indication: Cardiac failure acute
     Dosage: UNK
     Route: 042
  2. MILRINONE [Suspect]
     Active Substance: MILRINONE
     Indication: Cardiac failure acute
     Dosage: UNK
     Route: 042

REACTIONS (1)
  - Drug ineffective [Unknown]
